FAERS Safety Report 16285875 (Version 2)
Quarter: 2019Q3

REPORT INFORMATION
  Report Type: Spontaneous
  Country: US (occurrence: US)
  Receive Date: 20190508
  Receipt Date: 20190828
  Transmission Date: 20191004
  Serious: No
  Sender: FDA-Public Use
  Company Number: US-CORCEPT THERAPEUTICS INC.-US-2019CRT000473

PATIENT
  Age: 62 Year
  Sex: Female

DRUGS (1)
  1. KORLYM [Suspect]
     Active Substance: MIFEPRISTONE
     Indication: CUSHING^S SYNDROME
     Dosage: UNK
     Route: 048

REACTIONS (3)
  - Cellulitis [None]
  - Mastitis [Unknown]
  - Oedema [Unknown]
